FAERS Safety Report 24859013 (Version 2)
Quarter: 2025Q1

REPORT INFORMATION
  Report Type: Spontaneous
  Country: US (occurrence: US)
  Receive Date: 20250118
  Receipt Date: 20250127
  Transmission Date: 20250409
  Serious: Yes (Other)
  Sender: AUROBINDO
  Company Number: US-AUROBINDO-AUR-APL-2025-002175

PATIENT
  Age: 31 Year
  Sex: Female

DRUGS (1)
  1. IBUPROFEN [Suspect]
     Active Substance: IBUPROFEN
     Indication: Pain management
     Route: 042

REACTIONS (5)
  - Drug hypersensitivity [Recovered/Resolved]
  - Chest discomfort [Unknown]
  - Urticaria [Unknown]
  - Dyspnoea [Unknown]
  - Exposure during pregnancy [Recovered/Resolved]
